FAERS Safety Report 8494053 (Version 2)
Quarter: 2012Q4

REPORT INFORMATION
  Report Type: Report from Study
  Country: JP (occurrence: JP)
  Receive Date: 20120404
  Receipt Date: 20121231
  Transmission Date: 20130627
  Serious: Yes (Hospitalization)
  Sender: FDA-Public Use
  Company Number: PHHY2012JP028206

PATIENT
  Age: 60 Year
  Sex: Male
  Weight: 80 kg

DRUGS (4)
  1. AFINITOR [Suspect]
     Indication: METASTATIC RENAL CELL CARCINOMA
     Dosage: 5 mg, Daily
     Route: 048
     Dates: start: 20110216, end: 20110222
  2. AFINITOR [Suspect]
     Dosage: 10 mg, Daily
     Route: 048
     Dates: start: 20110223, end: 20110325
  3. RADIATION THERAPY [Concomitant]
     Indication: RENAL CELL CARCINOMA
     Dosage: UNK UKN, UNK
     Dates: start: 20110215
  4. RADIATION THERAPY [Concomitant]
     Dosage: UNK UKN, UNK
     Dates: start: 20110216, end: 20110303

REACTIONS (4)
  - Interstitial lung disease [Recovered/Resolved]
  - Pyrexia [Unknown]
  - Pathological fracture [Not Recovered/Not Resolved]
  - C-reactive protein increased [Unknown]
